FAERS Safety Report 8120627 (Version 2)
Quarter: 2013Q4

REPORT INFORMATION
  Report Type: Spontaneous
  Country: US (occurrence: US)
  Receive Date: 20110906
  Receipt Date: 20131226
  Transmission Date: 20140711
  Serious: Yes (Hospitalization, Other)
  Sender: FDA-Public Use
  Company Number: US-BAYER-2011-080460

PATIENT
  Age: 34 Year
  Sex: Female
  Weight: 99.77 kg

DRUGS (12)
  1. YAZ [Suspect]
     Indication: CONTRACEPTION
     Dosage: UNK
     Dates: start: 200802, end: 200812
  2. YAZ [Suspect]
     Indication: PREMENSTRUAL DYSPHORIC DISORDER
  3. OCELLA [Suspect]
     Indication: CONTRACEPTION
     Dosage: UNK
     Dates: start: 200802, end: 200812
  4. OCELLA [Suspect]
     Indication: PREMENSTRUAL DYSPHORIC DISORDER
  5. SEROQUEL [Concomitant]
     Indication: BIPOLAR DISORDER
     Dosage: UNK
     Dates: start: 2004
  6. METFORMIN [Concomitant]
  7. PROZAC [Concomitant]
  8. FLOVENT [Concomitant]
  9. ALBUTEROL [Concomitant]
  10. ADVAIR [Concomitant]
  11. CIPRODEX [Concomitant]
     Dosage: UNK
     Dates: start: 20090301
  12. NEOMYCIN W/POLYMYCIN B/HYDROCORTISONE [Concomitant]
     Dosage: UNK
     Dates: start: 20090301

REACTIONS (3)
  - Pancreatitis [None]
  - Abdominal pain upper [None]
  - Cholecystitis chronic [None]
